FAERS Safety Report 8600138-9 (Version None)
Quarter: 2012Q3

REPORT INFORMATION
  Report Type: 
  Country: None (occurrence: None)
  Receive Date: 20120817
  Receipt Date: 20120807
  Transmission Date: 20120928
  Serious: Yes (Other)
  Sender: FDA-Public Use
  Company Number: MT-AMGEN-MLTSP2012051153

PATIENT
  Age: 75 Year
  Sex: Female

DRUGS (3)
  1. PROLIA [Suspect]
     Indication: OSTEOPOROSIS POSTMENOPAUSAL
     Dosage: UNK
     Route: 058
     Dates: start: 20110701
  2. PROTELOS [Concomitant]
  3. FOSAVANCE [Concomitant]

REACTIONS (2)
  - BONE DENSITY DECREASED [None]
  - PRODUCT QUALITY ISSUE [None]
